FAERS Safety Report 18041117 (Version 1)
Quarter: 2020Q3

REPORT INFORMATION
  Report Type: Report from Study
  Country: HN (occurrence: HN)
  Receive Date: 20200718
  Receipt Date: 20200718
  Transmission Date: 20201103
  Serious: Yes (Other)
  Sender: FDA-Public Use
  Company Number: NVSC2020HN197559

PATIENT
  Age: 47 Year
  Sex: Male

DRUGS (1)
  1. CARVEDILOL. [Suspect]
     Active Substance: CARVEDILOL
     Dosage: 1 DF, QD (SINCE 8 YEARS AGO)
     Route: 048

REACTIONS (4)
  - Hypoaesthesia [Unknown]
  - Cerebrovascular accident [Unknown]
  - Infarction [Unknown]
  - Peripheral swelling [Recovered/Resolved]

NARRATIVE: CASE EVENT DATE: 201802
